FAERS Safety Report 5777143-3 (Version None)
Quarter: 2008Q2

REPORT INFORMATION
  Report Type: 
  Country: None (occurrence: None)
  Receive Date: 20080618
  Receipt Date: 20080612
  Transmission Date: 20081010
  Serious: Yes (Other)
  Sender: FDA-Public Use
  Company Number: US-MERCK-0706USA00983

PATIENT
  Age: 60 Year
  Sex: Female

DRUGS (3)
  1. FOSAMAX [Suspect]
     Indication: OSTEOPOROSIS
     Route: 048
     Dates: start: 19980101, end: 20060101
  2. INSULIN [Concomitant]
     Indication: TYPE 1 DIABETES MELLITUS
     Route: 065
     Dates: start: 19880101
  3. ZOCOR [Concomitant]
     Indication: BLOOD CHOLESTEROL INCREASED
     Route: 048
     Dates: start: 19980101

REACTIONS (14)
  - ARTHROPATHY [None]
  - BALANCE DISORDER [None]
  - DENNIE-MORGAN FOLD [None]
  - HEADACHE [None]
  - HYPOGEUSIA [None]
  - INFLAMMATORY BOWEL DISEASE [None]
  - ORAL INFECTION [None]
  - OSTEONECROSIS [None]
  - PANCREATIC CYST [None]
  - PANCREATITIS [None]
  - RHINITIS [None]
  - RHINITIS ALLERGIC [None]
  - TEMPOROMANDIBULAR JOINT SYNDROME [None]
  - TINNITUS [None]
